FAERS Safety Report 5168388-4 (Version None)
Quarter: 2006Q4

REPORT INFORMATION
  Report Type: 
  Country: None (occurrence: None)
  Receive Date: 20061201
  Receipt Date: 20061120
  Transmission Date: 20070319
  Serious: Yes (Other)
  Sender: FDA-Public Use
  Company Number: 150047ISR

PATIENT
  Age: 51 Year
  Sex: Female

DRUGS (2)
  1. DICLOFENAC SODIUM [Suspect]
     Dosage: 75 MG (25 MG, 3 - 1 D) ORAL
     Route: 048
     Dates: start: 20061029, end: 20061031
  2. ANASTROZOLE [Suspect]
     Indication: BREAST CANCER
     Dosage: 1 MG (1 MG, 1 IN 1 D)
     Dates: start: 20061020, end: 20061031

REACTIONS (2)
  - ERYTHEMA NODOSUM [None]
  - PAIN IN EXTREMITY [None]
